FAERS Safety Report 7931234 (Version 7)
Quarter: 2012Q4

REPORT INFORMATION
  Report Type: Report from Study
  Country: US (occurrence: US)
  Receive Date: 20110505
  Receipt Date: 20120918
  Transmission Date: 20130627
  Serious: Yes (Hospitalization)
  Sender: FDA-Public Use
  Company Number: US-JNJFOC-20110410560

PATIENT
  Age: 15 Year
  Sex: Male
  Weight: 44.2 kg

DRUGS (13)
  1. INFLIXIMAB, RECOMBINANT [Suspect]
     Indication: CROHN^S DISEASE
     Route: 042
     Dates: end: 20110624
  2. INFLIXIMAB, RECOMBINANT [Suspect]
     Indication: CROHN^S DISEASE
     Route: 042
     Dates: start: 20110514
  3. INFLIXIMAB, RECOMBINANT [Suspect]
     Indication: CROHN^S DISEASE
     Route: 042
     Dates: start: 20091117
  4. INFLIXIMAB, RECOMBINANT [Suspect]
     Indication: CROHN^S DISEASE
     Route: 042
     Dates: start: 20091020
  5. INFLIXIMAB, RECOMBINANT [Suspect]
     Indication: CROHN^S DISEASE
     Route: 042
     Dates: start: 20091006
  6. INFLIXIMAB, RECOMBINANT [Suspect]
     Indication: CROHN^S DISEASE
     Route: 042
     Dates: start: 20050728, end: 20060609
  7. PENTASA [Concomitant]
     Indication: INFLAMMATORY BOWEL DISEASE
     Route: 048
  8. IMURAN [Concomitant]
     Indication: INFLAMMATORY BOWEL DISEASE
  9. IRON [Concomitant]
  10. VITAMIN [Concomitant]
  11. HUMIRA [Concomitant]
  12. ANTIBIOTICS [Concomitant]
  13. PERIACTIN [Concomitant]

REACTIONS (1)
  - Rectal abscess [Recovered/Resolved with Sequelae]
